FAERS Safety Report 7088591-6 (Version None)
Quarter: 2010Q4

REPORT INFORMATION
  Report Type: 
  Country: None (occurrence: None)
  Receive Date: 20101029
  Receipt Date: 20101013
  Transmission Date: 20110411
  Serious: Yes (Other)
  Sender: FDA-Public Use
  Company Number: 2010P1001081

PATIENT
  Age: 69 Year
  Sex: Male
  Weight: 77.1115 kg

DRUGS (10)
  1. WARFARIN SODIUM [Suspect]
     Indication: AORTIC VALVE REPLACEMENT
     Dosage: 5 MG; QD; PO
     Route: 048
     Dates: start: 19890101
  2. WARFARIN TABLET 1 MG (NON-TARO) (NO PREF. NAME) [Suspect]
     Indication: AORTIC VALVE REPLACEMENT
     Dosage: 1 MG; QD ON MON, FRI; PO
     Route: 048
     Dates: start: 19890101
  3. LEVOTHYROXINE SODIUM [Concomitant]
  4. SAW PALMETTO [Concomitant]
  5. MULTI-VITAMIN [Concomitant]
  6. CALCIUM/MAGNESIUM/ZINC [Concomitant]
  7. L-ARGININE [Concomitant]
  8. CIALIS [Concomitant]
  9. CRANBERRY EXTRACT [Concomitant]
  10. ASCORBIC ACID [Concomitant]

REACTIONS (4)
  - CONTUSION [None]
  - FOOD INTERACTION [None]
  - HAEMORRHAGE [None]
  - INTERNATIONAL NORMALISED RATIO INCREASED [None]
